FAERS Safety Report 14943330 (Version 1)
Quarter: 2018Q2

REPORT INFORMATION
  Report Type: Spontaneous
  Country: IT (occurrence: IT)
  Receive Date: 20180528
  Receipt Date: 20180528
  Transmission Date: 20180711
  Serious: Yes (Hospitalization)
  Sender: FDA-Public Use
  Company Number: IT-TEVA-2018-IT-896181

PATIENT
  Age: 15 Year
  Weight: 78 kg

DRUGS (2)
  1. GLIVEC [Suspect]
     Active Substance: IMATINIB MESYLATE
     Indication: ACUTE LYMPHOCYTIC LEUKAEMIA
     Route: 065
  2. VINCRISTINE [Suspect]
     Active Substance: VINCRISTINE
     Indication: CHEMOTHERAPY
     Route: 065

REACTIONS (6)
  - Bronchiolitis [Recovered/Resolved]
  - Neuropathy peripheral [Recovered/Resolved]
  - Febrile neutropenia [Recovered/Resolved]
  - Hepatotoxicity [Recovered/Resolved]
  - Pneumonia [Recovered/Resolved]
  - Myopathy [Recovered/Resolved]

NARRATIVE: CASE EVENT DATE: 20141008
